FAERS Safety Report 4971465-1 (Version None)
Quarter: 2006Q2

REPORT INFORMATION
  Report Type: 
  Country: None (occurrence: None)
  Receive Date: 20060413
  Receipt Date: 20060407
  Transmission Date: 20061013
  Serious: Yes (Hospitalization)
  Sender: FDA-Public Use
  Company Number: PHBS2006CH05165

PATIENT
  Age: 73 Year
  Sex: Male

DRUGS (5)
  1. AREDIA [Suspect]
     Indication: MULTIPLE MYELOMA
     Dosage: 90 MG, QMO
     Route: 042
     Dates: start: 20020101, end: 20030501
  2. ZOMETA [Suspect]
     Indication: MULTIPLE MYELOMA
     Dosage: 4 MG, QMO
     Route: 042
     Dates: start: 20030601
  3. ALKERAN [Concomitant]
     Dosage: 18 MG/D
     Route: 042
     Dates: start: 20050306, end: 20051208
  4. PREDNISONE [Concomitant]
     Dosage: 100 MG/D
     Dates: start: 20050306, end: 20051208
  5. CHEMOTHERAPEUTICS,OTHER [Concomitant]
     Dates: start: 20051205

REACTIONS (1)
  - OSTEONECROSIS [None]
